FAERS Safety Report 9775105 (Version 2)
Quarter: 2014Q1

REPORT INFORMATION
  Report Type: Spontaneous
  Country: JP (occurrence: JP)
  Receive Date: 20131220
  Receipt Date: 20140128
  Transmission Date: 20141002
  Serious: Yes (Other)
  Sender: FDA-Public Use
  Company Number: JP-OTSUKA-JP-2013-15909

PATIENT
  Age: 87 Year
  Sex: Female

DRUGS (2)
  1. PLETAAL [Suspect]
     Indication: INTRACRANIAL ANEURYSM
     Dosage: UNK
     Route: 048
  2. HEPARIN NA [Concomitant]
     Indication: INTRACRANIAL ANEURYSM
     Dosage: UNK

REACTIONS (1)
  - Post procedural haemorrhage [Unknown]
